FAERS Safety Report 11686176 (Version 1)
Quarter: 2015Q4

REPORT INFORMATION
  Report Type: Spontaneous
  Country: US (occurrence: US)
  Receive Date: 20151030
  Receipt Date: 20151030
  Transmission Date: 20160304
  Serious: Yes (Other)
  Sender: FDA-Public Use
  Company Number: US-PFIZER INC-2015353016

PATIENT
  Age: 58 Year
  Sex: Female
  Weight: 70.3 kg

DRUGS (1)
  1. ROBITUSSIN COUGH AND CHEST CONGESTION DM [Suspect]
     Active Substance: DEXTROMETHORPHAN HYDROBROMIDE\GUAIFENESIN
     Indication: COUGH
     Dosage: UNK, (TWO TEASPOON)
     Route: 048

REACTIONS (8)
  - Lower respiratory tract infection [Unknown]
  - Lung infection [Unknown]
  - Feeling hot [Unknown]
  - Product use issue [Unknown]
  - Blood glucose increased [Unknown]
  - Blood glucose fluctuation [Unknown]
  - Headache [Unknown]
  - Feeling abnormal [Unknown]
